FAERS Safety Report 15482664 (Version 2)
Quarter: 2018Q4

REPORT INFORMATION
  Report Type: Report from Study
  Country: JP (occurrence: JP)
  Receive Date: 20181010
  Receipt Date: 20181109
  Transmission Date: 20190205
  Serious: Yes (Death)
  Sender: FDA-Public Use
  Company Number: JP-ACTELION-A-CH2018-179895

PATIENT
  Age: 37 Year
  Sex: Female

DRUGS (11)
  1. OPSUMIT [Suspect]
     Active Substance: MACITENTAN
     Indication: PULMONARY ARTERIAL HYPERTENSION
     Dosage: 10 MG, QD
     Route: 048
     Dates: start: 20150918, end: 20180620
  2. UPTRAVI [Concomitant]
     Active Substance: SELEXIPAG
  3. CARELOAD [Concomitant]
     Active Substance: BERAPROST SODIUM
  4. ADCIRCA [Concomitant]
     Active Substance: TADALAFIL
  5. ANPLAG [Concomitant]
     Active Substance: SARPOGRELATE
  6. PREDONINE [Concomitant]
     Active Substance: PREDNISOLONE
  7. ONEALFA [Concomitant]
     Active Substance: ALFACALCIDOL
  8. XYZAL [Concomitant]
     Active Substance: LEVOCETIRIZINE DIHYDROCHLORIDE
  9. PLETAAL [Concomitant]
     Active Substance: CILOSTAZOL
  10. OXYGEN. [Concomitant]
     Active Substance: OXYGEN
  11. BAKTAR [Concomitant]
     Active Substance: SULFAMETHOXAZOLE\TRIMETHOPRIM

REACTIONS (5)
  - Oedema peripheral [Recovering/Resolving]
  - Infection [Not Recovered/Not Resolved]
  - Interstitial lung disease [Fatal]
  - Dizziness [Not Recovered/Not Resolved]
  - Headache [Recovering/Resolving]

NARRATIVE: CASE EVENT DATE: 20151105
